FAERS Safety Report 9461669 (Version 3)
Quarter: 2013Q3

REPORT INFORMATION
  Report Type: Spontaneous
  Country: CN (occurrence: CN)
  Receive Date: 20130816
  Receipt Date: 20130918
  Transmission Date: 20140515
  Serious: Yes (Other)
  Sender: FDA-Public Use
  Company Number: CN-JNJFOC-20130715932

PATIENT
  Sex: 0

DRUGS (6)
  1. ITRACONAZOLE [Suspect]
     Indication: SYSTEMIC MYCOSIS
     Dosage: 1 HOUR, DAY1 AND DAY2.
     Route: 041
  2. ITRACONAZOLE [Suspect]
     Indication: SYSTEMIC MYCOSIS
     Dosage: DAY3 TO DAY14.
     Route: 041
  3. ITRACONAZOLE [Suspect]
     Indication: SYSTEMIC MYCOSIS
     Route: 048
  4. GLUCOCORTICOID [Concomitant]
     Indication: PRODUCT USED FOR UNKNOWN INDICATION
     Dosage: LONG TERM
     Route: 065
  5. CHEMOTHERAPY [Concomitant]
     Indication: PRODUCT USED FOR UNKNOWN INDICATION
     Dosage: LONG TERM
     Route: 065
  6. ANTIBIOTICS [Concomitant]
     Indication: PRODUCT USED FOR UNKNOWN INDICATION
     Dosage: LONG TERM
     Route: 065

REACTIONS (4)
  - Drug effect decreased [Unknown]
  - Jaundice [Recovered/Resolved]
  - Liver disorder [Recovered/Resolved]
  - Hypokalaemia [Unknown]
